FAERS Safety Report 5778907-2 (Version None)
Quarter: 2008Q2

REPORT INFORMATION
  Report Type: 
  Country: None (occurrence: None)
  Receive Date: 20080619
  Receipt Date: 20080609
  Transmission Date: 20081010
  Serious: Yes (Hospitalization)
  Sender: FDA-Public Use
  Company Number: DE-MERCK-0806DEU00041

PATIENT
  Age: 57 Year
  Sex: Male

DRUGS (5)
  1. ISENTRESS [Suspect]
     Indication: HIV INFECTION
     Route: 048
     Dates: start: 20080101, end: 20080601
  2. ATAZANAVIR [Concomitant]
     Indication: HIV INFECTION
     Route: 065
     Dates: end: 20080601
  3. RITONAVIR [Concomitant]
     Indication: HIV INFECTION
     Route: 065
     Dates: end: 20080601
  4. ASPIRIN [Concomitant]
     Route: 065
  5. STATIN (UNSPECIFIED) [Concomitant]
     Route: 065

REACTIONS (7)
  - ACUTE SINUSITIS [None]
  - BLOOD CREATINE PHOSPHOKINASE INCREASED [None]
  - C-REACTIVE PROTEIN INCREASED [None]
  - JOINT SWELLING [None]
  - LIPODYSTROPHY ACQUIRED [None]
  - MYALGIA [None]
  - RASH [None]
